FAERS Safety Report 17065444 (Version 2)
Quarter: 2019Q4

REPORT INFORMATION
  Report Type: Spontaneous
  Country: US (occurrence: US)
  Receive Date: 20191122
  Receipt Date: 20191218
  Transmission Date: 20200122
  Serious: Yes (Hospitalization, Other)
  Sender: FDA-Public Use
  Company Number: US-GLAXOSMITHKLINE-US2019GSK207889

PATIENT
  Sex: Female

DRUGS (6)
  1. OMEPRAZOLE. [Suspect]
     Active Substance: OMEPRAZOLE
     Indication: PRODUCT USED FOR UNKNOWN INDICATION
     Dosage: UNK
     Route: 065
  2. PREVACID [Suspect]
     Active Substance: LANSOPRAZOLE
     Indication: PRODUCT USED FOR UNKNOWN INDICATION
     Dosage: 30 MG, QD
     Route: 048
  3. LANSOPRAZOLE. [Suspect]
     Active Substance: LANSOPRAZOLE
     Indication: GASTROOESOPHAGEAL REFLUX DISEASE
     Dosage: 30 MG, QD
     Route: 048
  4. PREVACID [Suspect]
     Active Substance: LANSOPRAZOLE
     Dosage: 15 MG, QD
     Route: 048
  5. PANTOPRAZOLE [Suspect]
     Active Substance: PANTOPRAZOLE
     Indication: PRODUCT USED FOR UNKNOWN INDICATION
     Dosage: 20 MG, QD
     Route: 048
  6. PREVACID [Suspect]
     Active Substance: LANSOPRAZOLE
     Indication: GASTROOESOPHAGEAL REFLUX DISEASE
     Dosage: 15 MG, TWICE A WEEK
     Route: 065

REACTIONS (16)
  - Haematuria [Unknown]
  - Diabetic nephropathy [Unknown]
  - Haemodialysis [Unknown]
  - Renal disorder [Unknown]
  - Renal failure [Unknown]
  - Anuria [Unknown]
  - Dysuria [Unknown]
  - Ureteral disorder [Unknown]
  - Acute kidney injury [Unknown]
  - Blood loss anaemia [Unknown]
  - Chronic kidney disease [Unknown]
  - Micturition urgency [Unknown]
  - End stage renal disease [Unknown]
  - Renal impairment [Unknown]
  - Nocturia [Unknown]
  - Tubulointerstitial nephritis [Unknown]
